FAERS Safety Report 9771924 (Version 1)
Quarter: 2013Q4

REPORT INFORMATION
  Report Type: Spontaneous
  Country: GR (occurrence: GR)
  Receive Date: 20131219
  Receipt Date: 20131219
  Transmission Date: 20140711
  Serious: Yes (Other)
  Sender: FDA-Public Use
  Company Number: GR-ROCHE-1321417

PATIENT
  Age: 35 Year
  Sex: Male

DRUGS (1)
  1. PEGASYS [Suspect]
     Indication: HEPATITIS B
     Route: 065

REACTIONS (3)
  - Abdominal pain [Recovering/Resolving]
  - Enteritis [Recovering/Resolving]
  - Crohn^s disease [Recovering/Resolving]
